FAERS Safety Report 9090173 (Version 1)
Quarter: 2013Q1

REPORT INFORMATION
  Report Type: Spontaneous
  Country: IT (occurrence: IT)
  Receive Date: 20130202
  Receipt Date: 20130202
  Transmission Date: 20140127
  Serious: Yes (Other)
  Sender: FDA-Public Use
  Company Number: IT-TEVA-382406ISR

PATIENT
  Age: 42 Year
  Sex: Male

DRUGS (9)
  1. RIBAVIRIN [Suspect]
     Indication: HEPATITIS C
     Dates: start: 2002
  2. RIBAVIRIN [Suspect]
     Indication: HEPATITIS C
     Dates: start: 2004
  3. RIBAVIRIN [Suspect]
     Indication: HEPATITIS C
     Dosage: 1200 MILLIGRAM DAILY;
     Dates: start: 201003
  4. PEGINTERFERON ALFA-2A [Suspect]
     Indication: HEPATITIS C
     Dates: start: 2002
  5. PEGINTERFERON ALFA-2A [Suspect]
     Indication: HEPATITIS C
     Dates: start: 2004
  6. PEGINTERFERON ALFA-2A [Suspect]
     Indication: HEPATITIS C
     Dates: start: 201003
  7. INSULIN [Concomitant]
     Indication: DIABETES MELLITUS
     Dates: start: 2002
  8. TACROLIMUS [Concomitant]
     Indication: IMMUNOSUPPRESSANT DRUG THERAPY
     Dates: start: 200607
  9. EPOETIN ALFA [Concomitant]
     Indication: ANAEMIA
     Dosage: 40 000 IU/WEEK
     Dates: start: 201004

REACTIONS (3)
  - Porphyria non-acute [Recovered/Resolved]
  - Hepatitis C [Unknown]
  - Anaemia [Unknown]
